FAERS Safety Report 6072911-5 (Version None)
Quarter: 2009Q1

REPORT INFORMATION
  Report Type: 
  Country: None (occurrence: None)
  Receive Date: 20090205
  Receipt Date: 20090112
  Transmission Date: 20090719
  Serious: Yes (Other)
  Sender: FDA-Public Use
  Company Number: 6048246

PATIENT
  Age: 50 Year
  Sex: Female

DRUGS (2)
  1. LEVOTHYROXINE SODIUM [Suspect]
     Indication: THYROIDECTOMY
     Dosage: 75 MCG (75 MCG,1 IN 1 D) ORAL ; (18.75 MCG) ORAL
     Route: 048
     Dates: start: 20040101, end: 20090110
  2. LEVOTHYROXINE SODIUM [Suspect]
     Indication: THYROIDECTOMY
     Dosage: 75 MCG (75 MCG,1 IN 1 D) ORAL ; (18.75 MCG) ORAL
     Route: 048
     Dates: start: 20090112

REACTIONS (10)
  - ABDOMINAL PAIN UPPER [None]
  - COW'S MILK INTOLERANCE [None]
  - DIZZINESS [None]
  - FOOD INTOLERANCE [None]
  - MUSCLE RIGIDITY [None]
  - MUSCULAR WEAKNESS [None]
  - OEDEMA PERIPHERAL [None]
  - OESOPHAGEAL OEDEMA [None]
  - PARAESTHESIA [None]
  - PHARYNGEAL OEDEMA [None]
